FAERS Safety Report 4917276-4 (Version None)
Quarter: 2006Q1

REPORT INFORMATION
  Report Type: 
  Country: None (occurrence: None)
  Receive Date: 20060221
  Receipt Date: 20050125
  Transmission Date: 20060701
  Serious: Yes (Hospitalization, Disabling)
  Sender: FDA-Public Use
  Company Number: US-MERCK-0501USA04124

PATIENT
  Age: 59 Year
  Sex: Male
  Weight: 93 kg

DRUGS (15)
  1. VIOXX [Suspect]
     Indication: ARTHRITIS
     Route: 048
     Dates: start: 20030228, end: 20040901
  2. VIOXX [Suspect]
     Route: 048
     Dates: start: 20010101
  3. TRAMADOLOR [Concomitant]
     Route: 065
  4. METOPROLOL [Concomitant]
     Route: 065
  5. ACCUPRIL [Concomitant]
     Route: 065
  6. PRILOSEC [Concomitant]
     Route: 048
  7. LIPITOR [Concomitant]
     Route: 065
  8. ATENOLOL [Concomitant]
     Route: 065
  9. ACETAMINOPHEN AND CODEINE PHOSPHATE [Concomitant]
     Route: 065
  10. PSEUDOEPHEDRINE [Concomitant]
     Route: 065
  11. ASPIRIN [Concomitant]
     Route: 065
  12. NORVASC [Concomitant]
     Route: 065
  13. PLAVIX [Concomitant]
     Route: 065
  14. CALCIUM CARBONATE [Concomitant]
     Route: 065
  15. NITRO-TABL [Concomitant]
     Route: 065

REACTIONS (10)
  - ABDOMINAL PAIN [None]
  - ACUTE MYOCARDIAL INFARCTION [None]
  - CARDIAC DISORDER [None]
  - CHEST PAIN [None]
  - CHRONIC FATIGUE SYNDROME [None]
  - CORONARY ARTERY DISEASE [None]
  - CORONARY ARTERY RESTENOSIS [None]
  - GASTROOESOPHAGEAL REFLUX DISEASE [None]
  - MYOCARDIAL INFARCTION [None]
  - PYREXIA [None]
